FAERS Safety Report 9921694 (Version 2)
Quarter: 2014Q1

REPORT INFORMATION
  Report Type: Spontaneous
  Country: TN (occurrence: TN)
  Receive Date: 20140225
  Receipt Date: 20140225
  Transmission Date: 20141002
  Serious: Yes (Hospitalization)
  Sender: FDA-Public Use
  Company Number: TN-PFIZER INC-2014033675

PATIENT
  Age: 34 Year
  Sex: Female

DRUGS (2)
  1. SULFASALAZINE [Suspect]
     Indication: ANKYLOSING SPONDYLITIS
     Dosage: 2 G, DAILY
  2. SULFASALAZINE [Suspect]
     Dosage: 2 G,SINGLE

REACTIONS (1)
  - Meningitis aseptic [Recovered/Resolved]
